FAERS Safety Report 8345427-0 (Version None)
Quarter: 2012Q2

REPORT INFORMATION
  Report Type: 
  Country: None (occurrence: None)
  Receive Date: 20120508
  Receipt Date: 20120503
  Transmission Date: 20120825
  Serious: Yes (Other)
  Sender: FDA-Public Use
  Company Number: US-BAYER-2012-043766

PATIENT
  Age: 75 Year
  Sex: Male
  Weight: 85 kg

DRUGS (3)
  1. ASPIRIN [Suspect]
     Indication: ISCHAEMIC HEART DISEASE PROPHYLAXIS
     Dosage: 1 DF, UNK
     Route: 048
     Dates: start: 20120301
  2. MULTI-VITAMIN [Concomitant]
  3. ANTIHYPERTENSIVES [Concomitant]

REACTIONS (1)
  - SWOLLEN TONGUE [None]
